FAERS Safety Report 9142691 (Version 1)
Quarter: 2013Q1

REPORT INFORMATION
  Report Type: Spontaneous
  Country: US (occurrence: US)
  Receive Date: 20130306
  Receipt Date: 20130306
  Transmission Date: 20140127
  Serious: No
  Sender: FDA-Public Use
  Company Number: US-ENDO PHARMACEUTICALS INC.-OPER20110071

PATIENT
  Sex: Male

DRUGS (4)
  1. OPANA ER 30MG [Suspect]
     Indication: PAIN
     Route: 048
     Dates: start: 201010
  2. OPANA ER 30MG [Suspect]
     Indication: PAIN IN EXTREMITY
     Route: 048
     Dates: start: 201010
  3. OPANA [Suspect]
     Indication: PAIN
     Route: 048
     Dates: start: 201010
  4. OPANA [Suspect]
     Indication: PAIN IN EXTREMITY

REACTIONS (2)
  - Drug screen negative [Not Recovered/Not Resolved]
  - Drug screen negative [Not Recovered/Not Resolved]
